FAERS Safety Report 15103709 (Version 3)
Quarter: 2018Q3

REPORT INFORMATION
  Report Type: Spontaneous
  Country: DE (occurrence: DE)
  Receive Date: 20180703
  Receipt Date: 20180808
  Transmission Date: 20181010
  Serious: Yes (Hospitalization, Other)
  Sender: FDA-Public Use
  Company Number: DE-OTSUKA-2018_017472

PATIENT
  Age: 57 Year
  Sex: Female

DRUGS (4)
  1. TRAZODONE [Concomitant]
     Active Substance: TRAZODONE HYDROCHLORIDE
     Indication: PRODUCT USED FOR UNKNOWN INDICATION
     Dosage: UNK
     Route: 065
  2. ABILIFY [Suspect]
     Active Substance: ARIPIPRAZOLE
     Indication: PRODUCT USED FOR UNKNOWN INDICATION
     Dosage: 5 MG, QD
     Route: 048
     Dates: start: 20180222, end: 20180228
  3. ABILIFY [Interacting]
     Active Substance: ARIPIPRAZOLE
     Dosage: 10 MG, QD
     Route: 048
     Dates: start: 20180301, end: 20180328
  4. PIPAMPERONE [Interacting]
     Active Substance: PIPAMPERONE
     Indication: PRODUCT USED FOR UNKNOWN INDICATION
     Dosage: 80 MG, QD
     Route: 048
     Dates: start: 20180314, end: 20180315

REACTIONS (15)
  - Drug interaction [Unknown]
  - Energy increased [Unknown]
  - Dysphagia [Unknown]
  - Underdose [Unknown]
  - Speech disorder [Unknown]
  - Dry mouth [Unknown]
  - Hospitalisation [Recovered/Resolved]
  - Thinking abnormal [Unknown]
  - Dysphonia [Unknown]
  - Chills [Unknown]
  - Dyskinesia [Recovered/Resolved]
  - Anxiety [Unknown]
  - Compulsions [Unknown]
  - Oropharyngeal spasm [Unknown]
  - Akathisia [Unknown]

NARRATIVE: CASE EVENT DATE: 20180222
